FAERS Safety Report 7956168-3 (Version None)
Quarter: 2011Q4

REPORT INFORMATION
  Report Type: 
  Country: None (occurrence: None)
  Receive Date: 20111122
  Receipt Date: 20111109
  Transmission Date: 20120403
  Serious: Yes (Other)
  Sender: FDA-Public Use
  Company Number: 2011029758

PATIENT
  Age: 50 Year
  Sex: Male
  Weight: 92.0802 kg

DRUGS (29)
  1. HIZENTRA [Suspect]
     Indication: IMMUNODEFICIENCY COMMON VARIABLE
     Dosage: SUBCUTANEOUS
     Route: 058
     Dates: start: 20110106
  2. CIPRO [Concomitant]
  3. DEPO-TESTOSTERONE [Concomitant]
  4. VENTOLIN [Concomitant]
  5. AZELASTINE HCL [Concomitant]
  6. HIZENTRA [Suspect]
     Dosage: (15 G 1X/WEEK, (75ML) 3-4 SITES SUBCUTANEOUS)
     Route: 058
     Dates: start: 20110902, end: 20110902
  7. MS CONTIN [Concomitant]
  8. OMEPRAZOLE [Concomitant]
  9. HIZENTRA [Suspect]
     Dosage: SUBCUTANEOUS
     Route: 058
     Dates: start: 20110908
  10. CODEINE SULFATE [Concomitant]
  11. AUGMENTIN [Concomitant]
  12. AZULFIDINE [Concomitant]
  13. AMBIEN [Concomitant]
  14. NITROSTAT [Concomitant]
  15. ACETAMINOPHEN [Concomitant]
  16. MYCOSTATIN [Concomitant]
  17. AZULFIDINE [Concomitant]
  18. HIZENTRA [Suspect]
     Dosage: (10 G 1X/WEEK, (50ML) SUBCUTANEOUS)
     Route: 058
     Dates: start: 20110110
  19. BACTRIM [Concomitant]
  20. SYNTHROID [Concomitant]
  21. FENTANYL-100 [Concomitant]
  22. FOLIC ACID [Concomitant]
  23. ADVAIR HFA [Concomitant]
  24. PANCREAZE (PANCRELIPASE) [Concomitant]
  25. HIZENTRA [Suspect]
     Dosage: SUBCUTANEOUS
     Route: 058
     Dates: start: 20110902, end: 20110902
  26. PROVENTIL [Concomitant]
  27. MOMETASONE FUROATE [Concomitant]
  28. PROMETHAZINE [Concomitant]
  29. LIDODERM [Concomitant]

REACTIONS (2)
  - RESPIRATORY TRACT INFECTION [None]
  - ANAPHYLACTIC REACTION [None]
